FAERS Safety Report 24531502 (Version 1)
Quarter: 2024Q4

REPORT INFORMATION
  Report Type: Report from Study
  Country: CA (occurrence: CA)
  Receive Date: 20241022
  Receipt Date: 20241022
  Transmission Date: 20250115
  Serious: No
  Sender: ROCHE
  Company Number: CA-ROCHE-2043712

PATIENT
  Sex: Male

DRUGS (3)
  1. PULMOZYME [Suspect]
     Active Substance: DORNASE ALFA
     Indication: Cystic fibrosis
     Route: 065
     Dates: start: 20130807
  2. PULMOZYME [Suspect]
     Active Substance: DORNASE ALFA
     Dosage: RECEIVED PULMOZYME OUTSIDE OF RPAP. DOSING?DETAILS WERE NOT PROVIDED
     Route: 065
     Dates: start: 20100608
  3. TRIKAFTA [Concomitant]
     Active Substance: ELEXACAFTOR\IVACAFTOR\TEZACAFTOR

REACTIONS (1)
  - Lower respiratory tract infection [Not Recovered/Not Resolved]
